FAERS Safety Report 5494127-3 (Version None)
Quarter: 2007Q4

REPORT INFORMATION
  Report Type: 
  Country: None (occurrence: None)
  Receive Date: 20071022
  Receipt Date: 20070927
  Transmission Date: 20080405
  Serious: No
  Sender: FDA-Public Use
  Company Number: TPA2007A02008

PATIENT
  Age: 39 Year
  Sex: Male
  Weight: 140.1615 kg

DRUGS (11)
  1. ACTOPLUS MET [Suspect]
     Indication: BLOOD GLUCOSE INCREASED
     Dosage: SEE IMAGE
     Route: 048
     Dates: start: 20070913, end: 20070913
  2. ACTOPLUS MET [Suspect]
     Indication: BLOOD GLUCOSE INCREASED
     Dosage: SEE IMAGE
     Route: 048
     Dates: start: 20070914, end: 20070916
  3. ACTOPLUS MET [Suspect]
     Indication: BLOOD GLUCOSE INCREASED
     Dosage: SEE IMAGE
     Route: 048
     Dates: start: 20070917, end: 20070918
  4. ACTOPLUS MET [Suspect]
     Indication: BLOOD GLUCOSE INCREASED
     Dosage: SEE IMAGE
     Route: 048
     Dates: start: 20070921, end: 20070922
  5. ACTOPLUS MET [Suspect]
     Indication: BLOOD GLUCOSE INCREASED
     Dosage: SEE IMAGE
     Route: 048
     Dates: start: 20070923
  6. NEXIUM [Concomitant]
  7. CARDURA [Concomitant]
  8. PRAVACHO(PRAVASTATIN SODIUM) [Concomitant]
  9. XANAX [Concomitant]
  10. ZOLOFT [Concomitant]
  11. ALLEGRA D(PSEUDOEPHEDRINE HYDROCHLORIDE, FEXOFENADINE HYDROCHLORIDE) [Concomitant]

REACTIONS (1)
  - VISION BLURRED [None]
